FAERS Safety Report 24854251 (Version 1)
Quarter: 2025Q1

REPORT INFORMATION
  Report Type: Report from Study
  Country: US (occurrence: US)
  Receive Date: 20250117
  Receipt Date: 20250117
  Transmission Date: 20250408
  Serious: Yes (Death)
  Sender: ROCHE
  Company Number: US-ROCHE-10000179819

PATIENT
  Age: 7 Year
  Sex: Female
  Weight: 12.25 kg

DRUGS (1)
  1. EVRYSDI [Suspect]
     Active Substance: RISDIPLAM
     Indication: Spinal muscular atrophy
     Route: 065
     Dates: end: 20220816

REACTIONS (2)
  - Rhinovirus infection [Fatal]
  - Respiratory syncytial virus infection [Fatal]
